FAERS Safety Report 11169467 (Version 2)
Quarter: 2015Q4

REPORT INFORMATION
  Report Type: Report from Study
  Country: RO (occurrence: RO)
  Receive Date: 20150605
  Receipt Date: 20151228
  Transmission Date: 20160304
  Serious: Yes (Death, Hospitalization)
  Sender: FDA-Public Use
  Company Number: RO-B.I. PHARMACEUTICALS,INC./RIDGEFIELD-2015-BI-24116BI

PATIENT
  Age: 73 Year
  Sex: Female
  Weight: 54 kg

DRUGS (33)
  1. GILOTRIF [Suspect]
     Active Substance: AFATINIB
     Dosage: 30 MG
     Route: 048
     Dates: start: 20150513, end: 20150524
  2. SIMVASTATINUM [Concomitant]
     Indication: DYSLIPIDAEMIA
     Dosage: 10 MG
     Route: 048
     Dates: start: 2012, end: 20150530
  3. RANITIDINUM [Concomitant]
     Indication: PROPHYLAXIS
     Dosage: 300 MG
     Route: 048
     Dates: start: 20150430, end: 20150530
  4. METAMIZOLUM [Concomitant]
     Dosage: 4 G
     Route: 042
     Dates: start: 20150530, end: 20150603
  5. PANTAPRAZOLUM [Concomitant]
     Indication: PROPHYLAXIS
     Dosage: 20 MG
     Route: 042
     Dates: start: 20150525, end: 20150528
  6. PANTAPRAZOLUM [Concomitant]
     Dosage: 20 MG
     Route: 042
     Dates: start: 20150529, end: 20150529
  7. AMLODIPINE [Concomitant]
     Active Substance: AMLODIPINE BESYLATE
     Indication: HYPERTENSION
     Dosage: 5 MG
     Route: 048
     Dates: start: 2012, end: 20150529
  8. DROTAVERINUM [Concomitant]
     Indication: CHEST PAIN
     Dosage: 40 MG
     Route: 030
     Dates: start: 20150505, end: 20150505
  9. DEXAMETASONE [Concomitant]
     Active Substance: DEXAMETHASONE
     Indication: TRANSAMINASES INCREASED
     Dosage: 8 MG
     Route: 042
     Dates: start: 20150525, end: 20150528
  10. ARGININE SORBITOL [Concomitant]
     Indication: CACHEXIA
     Dosage: 200 ML
     Route: 042
     Dates: start: 20150505, end: 20150512
  11. PYRIDOXINUM [Concomitant]
     Dosage: 500 MG
     Route: 042
     Dates: start: 20150529, end: 20150603
  12. GILOTRIF [Suspect]
     Active Substance: AFATINIB
     Indication: NON-SMALL CELL LUNG CANCER
     Dosage: 40 MG
     Route: 048
     Dates: start: 20150428, end: 20150503
  13. VITAMAX [Concomitant]
     Indication: CACHEXIA
     Dosage: DOSE PER APP AND DAILY DOSE: 1
     Route: 048
     Dates: start: 20150430, end: 20150530
  14. TRAMADOL. [Concomitant]
     Active Substance: TRAMADOL
     Indication: CHEST PAIN
     Dosage: 200 MG
     Route: 048
     Dates: start: 20150430, end: 20150530
  15. RANITIDINUM [Concomitant]
     Dosage: 300 MG
     Route: 042
     Dates: start: 20150505, end: 20150512
  16. DROTAVERINUM [Concomitant]
     Dosage: 80 MG
     Route: 042
     Dates: start: 20150529, end: 20150529
  17. METANIUM [Concomitant]
     Indication: CACHEXIA
     Dosage: 100 MG
     Route: 042
     Dates: start: 20150525, end: 20150528
  18. HYDROCORTISONE HEMISUCCINATE [Concomitant]
     Active Substance: HYDROCORTISONE HEMISUCCINATE
     Dosage: 400 MG
     Route: 042
     Dates: start: 20150530, end: 20150530
  19. METOCLOPRAMIDUM [Concomitant]
     Indication: PROPHYLAXIS OF NAUSEA AND VOMITING
     Dosage: 20 MG
     Route: 042
     Dates: start: 20150505, end: 20150512
  20. KETOPROFENUM [Concomitant]
     Dosage: 200 MG
     Route: 042
     Dates: start: 20150505, end: 20150512
  21. HYDROCORTISONE HEMISUCCINATE [Concomitant]
     Active Substance: HYDROCORTISONE HEMISUCCINATE
     Indication: HYPOTENSION
     Dosage: 200 MG
     Route: 042
     Dates: start: 20150528, end: 20150528
  22. CEFTRIAXONUM [Concomitant]
     Dosage: 2 G
     Route: 042
     Dates: start: 20150530, end: 20150530
  23. LISINOPRILUM [Concomitant]
     Indication: HYPERTENSION
     Dosage: 20 MG
     Route: 048
     Dates: start: 2012, end: 20150529
  24. METAMIZOLUM [Concomitant]
     Indication: CHEST PAIN
     Dosage: 2 G
     Route: 042
     Dates: start: 20150505, end: 20150512
  25. METAMIZOLUM [Concomitant]
     Dosage: 1 G
     Route: 042
     Dates: start: 20150528, end: 20150528
  26. METANIUM [Concomitant]
     Dosage: 200 MG
     Route: 042
     Dates: start: 20150529, end: 20150603
  27. ARGININE SORBITOL [Concomitant]
     Dosage: 250 ML
     Route: 042
     Dates: start: 20150525, end: 20150528
  28. CEFTRIAXONUM [Concomitant]
     Indication: INFECTION PROPHYLAXIS
     Dosage: 2 G
     Route: 042
     Dates: start: 20150505, end: 20150512
  29. KETOPROFENUM [Concomitant]
     Indication: CHEST PAIN
     Dosage: 100 MG
     Route: 048
     Dates: start: 20150430, end: 20150530
  30. METOCLOPRAMIDUM [Concomitant]
     Dosage: 20 MG
     Route: 042
     Dates: start: 20150529, end: 20150529
  31. METAMIZOLUM [Concomitant]
     Dosage: 2 G
     Route: 042
     Dates: start: 20150529, end: 20150529
  32. DROTAVERINUM [Concomitant]
     Dosage: 40 MG
     Route: 042
     Dates: start: 20150525, end: 20150528
  33. PYRIDOXINUM [Concomitant]
     Indication: CACHEXIA
     Dosage: 250 MG
     Route: 042
     Dates: start: 20150525, end: 20150528

REACTIONS (2)
  - Acute hepatic failure [Fatal]
  - Fatigue [Recovered/Resolved]

NARRATIVE: CASE EVENT DATE: 20150501
